FAERS Safety Report 11993113 (Version 3)
Quarter: 2016Q1

REPORT INFORMATION
  Report Type: Report from Study
  Country: DE (occurrence: DE)
  Receive Date: 20160203
  Receipt Date: 20160307
  Transmission Date: 20160526
  Serious: Yes (Hospitalization)
  Sender: FDA-Public Use
  Company Number: DE-ABBVIE-16K-062-1548933-00

PATIENT
  Age: 62 Year
  Sex: Female
  Weight: 94 kg

DRUGS (2)
  1. HUMIRA [Suspect]
     Active Substance: ADALIMUMAB
     Indication: RHEUMATOID ARTHRITIS
     Route: 058
     Dates: start: 20110524, end: 20150617
  2. PREDNISOLONE. [Concomitant]
     Active Substance: PREDNISOLONE
     Indication: RHEUMATOID ARTHRITIS
     Route: 048

REACTIONS (3)
  - Drug effect decreased [Unknown]
  - Rheumatoid arthritis [Recovering/Resolving]
  - Rheumatic disorder [Recovered/Resolved]

NARRATIVE: CASE EVENT DATE: 20150512
